FAERS Safety Report 10056665 (Version 1)
Quarter: 2014Q2

REPORT INFORMATION
  Report Type: Spontaneous
  Country: IN (occurrence: IN)
  Receive Date: 20140403
  Receipt Date: 20140403
  Transmission Date: 20141212
  Serious: Yes (Other)
  Sender: FDA-Public Use
  Company Number: IN-WATSON-2014-06068

PATIENT
  Age: 28 Year
  Sex: Male

DRUGS (16)
  1. OLANZAPINE (UNKNOWN) [Suspect]
     Indication: SCHIZOPHRENIA
     Dosage: 20 MG, DAILY
     Route: 065
  2. OLANZAPINE (UNKNOWN) [Suspect]
     Dosage: 15 MG, DAILY
     Route: 065
  3. OLANZAPINE (UNKNOWN) [Suspect]
     Dosage: 15 MG, DAILY
     Route: 065
  4. ARIPIPRAZOLE (UNKNOWN) [Suspect]
     Indication: SCHIZOPHRENIA
     Dosage: 15 MG, DAILY
     Route: 065
  5. ARIPIPRAZOLE (UNKNOWN) [Suspect]
     Dosage: 10 MG, DAILY
     Route: 065
  6. ARIPIPRAZOLE (UNKNOWN) [Suspect]
     Dosage: 5 MG, DAILY
     Route: 065
  7. RISPERIDONE (UNKNOWN) [Suspect]
     Indication: SCHIZOPHRENIA
     Dosage: 20 MG, DAILY
     Route: 065
  8. RISPERIDONE (UNKNOWN) [Suspect]
     Dosage: 16 MG, DAILY
     Route: 065
  9. RISPERIDONE (UNKNOWN) [Suspect]
     Dosage: 8 MG, DAILY
     Route: 065
  10. RISPERIDONE (UNKNOWN) [Suspect]
     Dosage: 3 MG, DAILY
     Route: 065
  11. SODIUM VALPROATE [Concomitant]
     Indication: SCHIZOPHRENIA
     Dosage: 1000 MG, DAILY
     Route: 065
  12. SODIUM VALPROATE [Concomitant]
     Dosage: UNK
     Route: 065
  13. TRIHEXYPHENIDYL [Concomitant]
     Indication: SCHIZOPHRENIA
     Dosage: 8 MG, DAILY
     Route: 065
  14. TRIHEXYPHENIDYL [Concomitant]
     Dosage: 6 MG, DAILY
     Route: 065
  15. TRIHEXYPHENIDYL [Concomitant]
     Dosage: 4 MG, DAILY
     Route: 065
  16. TRIHEXYPHENIDYL [Concomitant]
     Dosage: 2 MG, DAILY
     Route: 065

REACTIONS (2)
  - Weight increased [Unknown]
  - Blood prolactin increased [Unknown]
